FAERS Safety Report 18506151 (Version 1)
Quarter: 2020Q4

REPORT INFORMATION
  Report Type: Spontaneous
  Country: US (occurrence: US)
  Receive Date: 20201116
  Receipt Date: 20201116
  Transmission Date: 20210114
  Serious: No
  Sender: FDA-Public Use
  Company Number: US-ELI_LILLY_AND_COMPANY-US202010012056

PATIENT
  Sex: Female

DRUGS (3)
  1. DEPAKOTE [Concomitant]
     Active Substance: DIVALPROEX SODIUM
     Indication: MIGRAINE PROPHYLAXIS
  2. EMGALITY [Suspect]
     Active Substance: GALCANEZUMAB-GNLM
     Indication: MIGRAINE
     Dosage: 120 MG, UNKNOWN
     Route: 058
  3. MAXALT [Concomitant]
     Active Substance: RIZATRIPTAN BENZOATE
     Indication: MIGRAINE PROPHYLAXIS
     Dosage: UNK, BID

REACTIONS (8)
  - Anxiety [Unknown]
  - Headache [Not Recovered/Not Resolved]
  - Eye disorder [Unknown]
  - Sleep deficit [Unknown]
  - Thinking abnormal [Unknown]
  - Nausea [Unknown]
  - Malaise [Unknown]
  - Vertigo [Unknown]
